FAERS Safety Report 19525409 (Version 1)
Quarter: 2021Q3

REPORT INFORMATION
  Report Type: Spontaneous
  Country: FR (occurrence: FR)
  Receive Date: 20210712
  Receipt Date: 20210712
  Transmission Date: 20211014
  Serious: Yes (Death, Hospitalization)
  Sender: FDA-Public Use
  Company Number: FR-CELLTRION INC.-2021FR009261

PATIENT

DRUGS (8)
  1. RITUXIMAB (UNKNOWN) [Suspect]
     Active Substance: RITUXIMAB
     Indication: COLD TYPE HAEMOLYTIC ANAEMIA
     Dosage: UNK
  2. FLUINDIONE [Concomitant]
     Active Substance: FLUINDIONE
     Dosage: 20 MG, DAILY
  3. DIGOXIN. [Concomitant]
     Active Substance: DIGOXIN
     Indication: HEART RATE ABNORMAL
  4. BISOPROLOL [Concomitant]
     Active Substance: BISOPROLOL
     Dosage: 5 MG TWICE DAILY
  5. FLECAINIDE [Concomitant]
     Active Substance: FLECAINIDE
     Dosage: 100 MG, DAILY
  6. BENDAMUSTINE [Suspect]
     Active Substance: BENDAMUSTINE
     Indication: COLD TYPE HAEMOLYTIC ANAEMIA
  7. ASPIRIN [ACETYLSALICYLIC ACID] [Concomitant]
     Active Substance: ASPIRIN
     Dosage: 250 MG, DAILY
  8. ILOPROST. [Concomitant]
     Active Substance: ILOPROST
     Dosage: 0.5 ML/H (COULD NOT BE INCREASED DUE TO THE PATIENT^S INTOLERANCE)
     Route: 042

REACTIONS (6)
  - Death [Fatal]
  - Necrosis [Unknown]
  - Haemorrhage [Unknown]
  - Disease progression [Unknown]
  - Off label use [Unknown]
  - Haematoma [Unknown]
